FAERS Safety Report 6387873-0 (Version None)
Quarter: 2009Q4

REPORT INFORMATION
  Report Type: 
  Country: None (occurrence: None)
  Receive Date: 20091005
  Receipt Date: 20090925
  Transmission Date: 20100525
  Serious: Yes (Hospitalization)
  Sender: FDA-Public Use
  Company Number: DE-JNJFOC-20090907360

PATIENT
  Age: 83 Year
  Sex: Female
  Weight: 68 kg

DRUGS (14)
  1. FENTANYL [Suspect]
     Route: 062
  2. FENTANYL [Suspect]
     Indication: PAIN
     Route: 062
  3. ACTRAPID HUMAN [Concomitant]
     Indication: DIABETES MELLITUS
     Route: 058
  4. ACETYLSALICYLIC ACID [Concomitant]
     Indication: THROMBOSIS PROPHYLAXIS
     Route: 048
  5. BELOC ZOK [Concomitant]
     Indication: HYPERTENSION
     Route: 048
  6. CYMBALTA [Concomitant]
     Indication: PAIN
     Route: 048
  7. EBRANTIL [Concomitant]
     Indication: HYPERTENSION
     Route: 048
  8. EXFORGE [Concomitant]
     Indication: HYPERTENSION
     Route: 048
  9. METHIZOL [Concomitant]
     Indication: TOXIC NODULAR GOITRE
     Route: 048
  10. MIRTAZAPINE [Concomitant]
     Indication: DEPRESSION
     Route: 048
  11. MOXONIDINE [Concomitant]
     Indication: HYPERTENSION
     Route: 048
  12. ALISKIREN [Concomitant]
     Indication: HYPERTENSION
     Route: 048
  13. RISPERDAL [Concomitant]
     Indication: DEMENTIA
     Route: 048
  14. TORSEMIDE [Concomitant]
     Indication: HYPERTENSION
     Route: 048

REACTIONS (14)
  - BLOOD CREATINE INCREASED [None]
  - BLOOD GLUCOSE DECREASED [None]
  - BLOOD UREA INCREASED [None]
  - DEHYDRATION [None]
  - DYSARTHRIA [None]
  - GENERAL PHYSICAL HEALTH DETERIORATION [None]
  - GLOMERULAR FILTRATION RATE DECREASED [None]
  - HYPOTENSION [None]
  - INCORRECT DOSE ADMINISTERED [None]
  - MUCOSAL DRYNESS [None]
  - OVERDOSE [None]
  - SOMNOLENCE [None]
  - UNRESPONSIVE TO STIMULI [None]
  - WRONG TECHNIQUE IN DRUG USAGE PROCESS [None]
